FAERS Safety Report 6104235-1 (Version None)
Quarter: 2009Q1

REPORT INFORMATION
  Report Type: 
  Country: None (occurrence: None)
  Receive Date: 20090305
  Receipt Date: 20090225
  Transmission Date: 20090719
  Serious: Yes (Congenital Anomaly, Other)
  Sender: FDA-Public Use
  Company Number: GB-TEVA-186303ISR

PATIENT
  Weight: 0.795 kg

DRUGS (4)
  1. NIFEDIPINE [Suspect]
     Indication: BLOOD PRESSURE INCREASED
     Route: 064
  2. HYDRALAZINE HCL [Suspect]
     Indication: BLOOD PRESSURE INCREASED
     Route: 064
  3. LABETALOL HCL [Suspect]
     Route: 064
  4. METHYLDOPA [Suspect]
     Route: 064

REACTIONS (2)
  - FOETAL GROWTH RETARDATION [None]
  - HYPOGLYCAEMIA [None]
